FAERS Safety Report 21249387 (Version 2)
Quarter: 2023Q1

REPORT INFORMATION
  Report Type: Spontaneous
  Country: US (occurrence: US)
  Receive Date: 20220824
  Receipt Date: 20230224
  Transmission Date: 20230417
  Serious: Yes (Other)
  Sender: FDA-Public Use
  Company Number: US-ELI_LILLY_AND_COMPANY-US202208007781

PATIENT
  Age: 25 Year

DRUGS (1)
  1. BEBTELOVIMAB [Suspect]
     Active Substance: BEBTELOVIMAB
     Indication: COVID-19
     Dosage: UNK UNK, SINGLE
     Route: 065
     Dates: start: 20220809, end: 20220809

REACTIONS (23)
  - Myocarditis [Not Recovered/Not Resolved]
  - Flushing [Recovering/Resolving]
  - Swollen tongue [Unknown]
  - Lip swelling [Unknown]
  - Pharyngeal swelling [Unknown]
  - Photopsia [Recovered/Resolved]
  - Abdominal pain upper [Recovering/Resolving]
  - Vaginal haemorrhage [Recovering/Resolving]
  - Photopsia [Unknown]
  - Feeling abnormal [Recovering/Resolving]
  - Heart rate increased [Unknown]
  - Anxiety [Unknown]
  - Palpitations [Unknown]
  - Fear [Unknown]
  - Tachycardia [Not Recovered/Not Resolved]
  - Presyncope [Unknown]
  - Hyperhidrosis [Recovering/Resolving]
  - Chest pain [Recovering/Resolving]
  - Asthenia [Recovering/Resolving]
  - Hypertension [Unknown]
  - Dyspnoea [Recovering/Resolving]
  - Nausea [Unknown]
  - Hypersensitivity [Unknown]

NARRATIVE: CASE EVENT DATE: 20220809
